FAERS Safety Report 10156212 (Version 1)
Quarter: 2014Q2

REPORT INFORMATION
  Report Type: Spontaneous
  Country: PL (occurrence: PL)
  Receive Date: 20140507
  Receipt Date: 20140507
  Transmission Date: 20141212
  Serious: Yes (Hospitalization)
  Sender: FDA-Public Use
  Company Number: PL-ROCHE-1393333

PATIENT
  Age: 56 Year
  Sex: Female
  Weight: 51 kg

DRUGS (5)
  1. PEGASYS [Suspect]
     Indication: CHRONIC HEPATITIS C
     Route: 058
     Dates: start: 20131022
  2. COPEGUS [Suspect]
     Indication: CHRONIC HEPATITIS C
     Dosage: DAILY DOSE 800 MG
     Route: 048
     Dates: start: 20131022
  3. COPEGUS [Suspect]
     Route: 048
     Dates: start: 20131022
  4. VICTRELIS [Suspect]
     Indication: CHRONIC HEPATITIS C
     Dosage: DAILY DOSE 2400 MG
     Route: 048
     Dates: start: 20131119
  5. PRESTARIUM [Concomitant]
     Indication: HYPERTENSION
     Route: 065
     Dates: start: 2009

REACTIONS (4)
  - Lymphadenitis [Recovered/Resolved]
  - Anaemia [Recovered/Resolved]
  - Pyrexia [Unknown]
  - Malaise [Unknown]
